FAERS Safety Report 16726920 (Version 3)
Quarter: 2019Q4

REPORT INFORMATION
  Report Type: Spontaneous
  Country: AU (occurrence: AU)
  Receive Date: 20190821
  Receipt Date: 20191107
  Transmission Date: 20200122
  Serious: Yes (Death)
  Sender: FDA-Public Use
  Company Number: AU-BIOGEN-2019BI00776293

PATIENT
  Age: 10 Week
  Sex: Female

DRUGS (4)
  1. SPINRAZA [Suspect]
     Active Substance: NUSINERSEN
     Indication: SPINAL MUSCULAR ATROPHY
     Dosage: FIRST LOADING DOSE
     Route: 037
     Dates: start: 20190718
  2. SPINRAZA [Suspect]
     Active Substance: NUSINERSEN
     Route: 037
  3. SPINRAZA [Suspect]
     Active Substance: NUSINERSEN
     Dosage: THIRD LOADING DOSE
     Route: 037
     Dates: start: 20190813, end: 20190813
  4. SPINRAZA [Suspect]
     Active Substance: NUSINERSEN
     Dosage: SECOND LOADING DOSE
     Route: 037
     Dates: start: 20190801, end: 20190812

REACTIONS (1)
  - Spinal muscular atrophy [Fatal]
